FAERS Safety Report 7144806-7 (Version None)
Quarter: 2010Q4

REPORT INFORMATION
  Report Type: 
  Country: None (occurrence: None)
  Receive Date: 20101112
  Receipt Date: 20100913
  Transmission Date: 20110411
  Serious: Yes (Other)
  Sender: FDA-Public Use
  Company Number: 1000016222

PATIENT
  Age: 50 Year
  Sex: Male

DRUGS (10)
  1. SAVELLA [Suspect]
     Indication: PAIN
     Dosage: 12.5 MG (12.5 MG, 1 IN 1 D), ORAL; 25 MG (12.5 MG, 2 IN 1 D), ORAL; 50 MG (25 MG, 2 IN 1 D), ORAL
     Route: 048
     Dates: start: 20100907, end: 20100907
  2. SAVELLA [Suspect]
     Indication: PAIN
     Dosage: 12.5 MG (12.5 MG, 1 IN 1 D), ORAL; 25 MG (12.5 MG, 2 IN 1 D), ORAL; 50 MG (25 MG, 2 IN 1 D), ORAL
     Route: 048
     Dates: start: 20100908, end: 20100909
  3. SAVELLA [Suspect]
     Indication: PAIN
     Dosage: 12.5 MG (12.5 MG, 1 IN 1 D), ORAL; 25 MG (12.5 MG, 2 IN 1 D), ORAL; 50 MG (25 MG, 2 IN 1 D), ORAL
     Route: 048
     Dates: start: 20100910
  4. AMLODIPINE [Concomitant]
  5. BENAZEPRIL (BENAZEPRIL) (BENAZEPRIL) [Concomitant]
  6. LOVASTATIN (LOVASTATIN) (LOVASTATIN) [Concomitant]
  7. OXYCODONE/ACETAMINOPHEN (OXYCODONE, ACETAMINOPHEN) (TABLETS) (OXYCODON [Concomitant]
  8. DIAZEPAM (DIAZEPAM) (5 MILLIGRAM, TABLETS) (DIAZEPAM) [Concomitant]
  9. OMEPRAZOLE (OMEPRAZOLE) (20 MILLIGRAM) (OMEPRAZOLE) [Concomitant]
  10. ZOLPIDEM (ZOLPIDEM) (10 MILLIGRAM, TABLETS) (ZOLPIDEM) [Concomitant]

REACTIONS (3)
  - DYSURIA [None]
  - SUICIDAL IDEATION [None]
  - URINARY RETENTION [None]
